FAERS Safety Report 7388116-1 (Version None)
Quarter: 2011Q1

REPORT INFORMATION
  Report Type: 
  Country: None (occurrence: None)
  Receive Date: 20110324
  Receipt Date: 20110315
  Transmission Date: 20110831
  Serious: Yes (Hospitalization, Disabling)
  Sender: FDA-Public Use
  Company Number: 2011MA002441

PATIENT
  Age: 70 Year
  Sex: Female

DRUGS (10)
  1. CARBAMAZEPINE [Concomitant]
  2. BEVACIZUMAB [Concomitant]
  3. PERINDOPRIL ERBUMINE [Concomitant]
  4. ALBUTEROL SULFATE AUTOHALER [Concomitant]
  5. PACLITAXEL [Suspect]
     Indication: NON-SMALL CELL LUNG CANCER
     Dates: start: 20071101
  6. CARBOPLATIN [Concomitant]
  7. OMEPRAZOLE [Concomitant]
  8. APOMAB [Concomitant]
  9. THYROXINE [Concomitant]
  10. FELODIPINE [Concomitant]

REACTIONS (3)
  - CONDITION AGGRAVATED [None]
  - SPINAL CORD INFARCTION [None]
  - HYPERTENSION [None]
